FAERS Safety Report 5521112-5 (Version None)
Quarter: 2007Q4

REPORT INFORMATION
  Report Type: 
  Country: None (occurrence: None)
  Receive Date: 20071119
  Receipt Date: 20071108
  Transmission Date: 20080405
  Serious: Yes (Other)
  Sender: FDA-Public Use
  Company Number: JP-ASTRAZENECA-2007AP07197

PATIENT
  Sex: Male

DRUGS (2)
  1. CRESTOR [Suspect]
     Indication: HYPERCHOLESTEROLAEMIA
     Route: 048
     Dates: start: 20070619, end: 20071105
  2. NOVOLIN 50/50 [Concomitant]
     Dosage: DOSE UNKNOWN
     Route: 058

REACTIONS (1)
  - BLOOD POTASSIUM INCREASED [None]
